FAERS Safety Report 10234360 (Version 1)
Quarter: 2014Q2

REPORT INFORMATION
  Report Type: Report from Study
  Country: HK (occurrence: HK)
  Receive Date: 20140612
  Receipt Date: 20140612
  Transmission Date: 20141212
  Serious: Yes (Other)
  Sender: FDA-Public Use
  Company Number: HK-BAXTER-2014BAX031145

PATIENT
  Sex: 0

DRUGS (5)
  1. PRISM0CAL B22 [Suspect]
     Indication: RENAL REPLACEMENT THERAPY
     Route: 010
  2. PRISM0CAL B22 [Suspect]
     Indication: CONTINUOUS HAEMODIAFILTRATION
  3. PRISMOCITRATE 18/0 [Suspect]
     Indication: RENAL REPLACEMENT THERAPY
     Dosage: 120 ML/MIN
     Route: 010
  4. PRISMOCITRATE 18/0 [Suspect]
     Indication: CONTINUOUS HAEMODIAFILTRATION
     Dosage: 1000 ML/MIN
     Route: 010
  5. 0.9% SODIUM CHLORIDE INJ (BAXTER SHANGHAI) [Suspect]
     Indication: MEDICATION DILUTION
     Dosage: 100 ML/HR
     Route: 065

REACTIONS (2)
  - General physical health deterioration [Unknown]
  - Contraindication to medical treatment [None]
